FAERS Safety Report 4840640-9 (Version None)
Quarter: 2005Q4

REPORT INFORMATION
  Report Type: 
  Country: None (occurrence: None)
  Receive Date: 20051129
  Receipt Date: 20051129
  Transmission Date: 20060501
  Serious: No
  Sender: FDA-Public Use
  Company Number: None

PATIENT
  Sex: Male
  Weight: 77.5651 kg

DRUGS (11)
  1. NOVOLIN 70/30 [Suspect]
     Indication: DIABETES MELLITUS
     Dosage: 50 UNITS IN AM AND 30 UNITS IN PM
  2. COREG [Concomitant]
  3. FUROSEMIDE [Concomitant]
  4. DIGITEK [Concomitant]
  5. KLOR-CON [Concomitant]
  6. OXAZEPAM [Concomitant]
  7. CYMBALTA [Concomitant]
  8. ISOSORIDE MONO [Concomitant]
  9. SPIRONOLACTONE [Concomitant]
  10. TRILEPTAL [Concomitant]
  11. CRESTOR [Concomitant]

REACTIONS (4)
  - BLOOD GLUCOSE INCREASED [None]
  - DRUG EFFECT DECREASED [None]
  - GLYCOSYLATED HAEMOGLOBIN INCREASED [None]
  - PHARMACEUTICAL PRODUCT COMPLAINT [None]
